FAERS Safety Report 6019195-1 (Version None)
Quarter: 2008Q4

REPORT INFORMATION
  Report Type: 
  Country: None (occurrence: None)
  Receive Date: 20081224
  Receipt Date: 20081216
  Transmission Date: 20090506
  Serious: Yes (Death)
  Sender: FDA-Public Use
  Company Number: CH-PFIZER INC-2008158571

PATIENT

DRUGS (10)
  1. DIFLUCAN [Suspect]
     Route: 042
  2. TAZOBACTAM [Suspect]
     Indication: SEPSIS
  3. VANCOMYCIN HCL [Suspect]
     Dosage: FREQUENCY: CYCLIC,
  4. CORDARONE [Suspect]
  5. METRONIDAZOLE [Concomitant]
  6. FENTANYL [Concomitant]
  7. LIQUAEMIN INJ [Concomitant]
  8. NORADRENALINE [Concomitant]
  9. DOBUTAMINE [Concomitant]
  10. TIENAM [Concomitant]

REACTIONS (1)
  - CARDIAC ARREST [None]
